FAERS Safety Report 8356184-6 (Version None)
Quarter: 2012Q2

REPORT INFORMATION
  Report Type: 
  Country: None (occurrence: None)
  Receive Date: 20120514
  Receipt Date: 20120508
  Transmission Date: 20120825
  Serious: Yes (Life-Threatening, Hospitalization, Other)
  Sender: FDA-Public Use
  Company Number: JP-ASTELLAS-2012US003100

PATIENT
  Sex: Male
  Weight: 61 kg

DRUGS (6)
  1. GEMCITABINE HYDROCHLORIDE [Concomitant]
     Indication: ADENOCARCINOMA PANCREAS
     Dosage: 1000 MG/M2, UID/QD
     Route: 041
     Dates: start: 20120209, end: 20120209
  2. NEXIUM [Concomitant]
     Indication: PRODUCT USED FOR UNKNOWN INDICATION
     Dosage: 20 MG, UID/QD
     Route: 048
     Dates: start: 20120216, end: 20120202
  3. FAMOTIDINE [Concomitant]
     Indication: PRODUCT USED FOR UNKNOWN INDICATION
     Dosage: 20 MG, UID/QD
     Route: 048
     Dates: start: 20120228, end: 20120306
  4. GEMCITABINE HYDROCHLORIDE [Concomitant]
     Dosage: 1000 MG/M2, UID/QD
     Route: 041
     Dates: start: 20120216, end: 20120216
  5. LANSOPRAZOLE [Concomitant]
     Indication: DUODENITIS
     Dosage: 15 MG, UID/QD
     Route: 048
  6. ERLOTINIB HYDROCHLORIDE [Suspect]
     Indication: ADENOCARCINOMA PANCREAS
     Dosage: 100 MG, UID/QD
     Route: 048
     Dates: start: 20120209, end: 20120307

REACTIONS (10)
  - DERMATITIS ACNEIFORM [None]
  - BONE MARROW FAILURE [None]
  - GASTROINTESTINAL HAEMORRHAGE [None]
  - NEOPLASM MALIGNANT [None]
  - SHOCK [None]
  - GASTRIC VARICES [None]
  - HYPOTENSION [None]
  - HEPATIC FUNCTION ABNORMAL [None]
  - GASTRITIS EROSIVE [None]
  - BILE DUCT STENOSIS [None]
